FAERS Safety Report 9146113 (Version 1)
Quarter: 2013Q1

REPORT INFORMATION
  Report Type: Spontaneous
  Country: US (occurrence: None)
  Receive Date: 20130206
  Receipt Date: 20130206
  Transmission Date: 20140127
  Serious: Yes (Death)
  Sender: FDA-Public Use
  Company Number: 2013-022

PATIENT
  Age: 55 Year
  Sex: Male

DRUGS (1)
  1. FAZACLO (CLOZAPINE, USP) ODT (ORAL DISINTEGRATING TABLET) [Suspect]
     Dosage: 50-500 MG, QD, ORAL
     Route: 048

REACTIONS (1)
  - Cardiac disorder [None]
